FAERS Safety Report 20967600 (Version 4)
Quarter: 2023Q2

REPORT INFORMATION
  Report Type: Spontaneous
  Country: CA (occurrence: CA)
  Receive Date: 20220616
  Receipt Date: 20230511
  Transmission Date: 20230721
  Serious: Yes (Other)
  Sender: FDA-Public Use
  Company Number: CA-PFIZER INC-202200693918

PATIENT
  Age: 32 Year
  Sex: Female
  Weight: 43.54 kg

DRUGS (7)
  1. BOSULIF [Suspect]
     Active Substance: BOSUTINIB MONOHYDRATE
     Dosage: 100/500MG TBD PRESCRIBED IN 3RD LINE
  2. BOSULIF [Suspect]
     Active Substance: BOSUTINIB MONOHYDRATE
     Dosage: 400 MG, 1X/DAY
     Route: 048
  3. BOSULIF [Suspect]
     Active Substance: BOSUTINIB MONOHYDRATE
     Dosage: 100 MG, (4 TAB A DAY, CYCLE DAY1, CYCLE 2)
     Route: 048
     Dates: start: 20220519
  4. BOSULIF [Suspect]
     Active Substance: BOSUTINIB MONOHYDRATE
     Dosage: 100 MG, DAILY (TAKE 4 TABELTS PO 400MG TOTAL)CYCLE:DAY 1,CYCLE 1
     Route: 048
  5. BOSULIF [Suspect]
     Active Substance: BOSUTINIB MONOHYDRATE
     Dosage: 100 MG, DAILY (TAKE 4 TABELTS PO 400MG TOTAL)CYCLE:DAY 1,CYCLE 3
     Route: 048
  6. BOSULIF [Suspect]
     Active Substance: BOSUTINIB MONOHYDRATE
     Dosage: 100 MG, (400MG TOTAL) DAILY. CYCLE: DAY 1, CYCLE 6
     Route: 048
  7. LOPERAMIDE [Concomitant]
     Active Substance: LOPERAMIDE
     Dosage: 2 MG

REACTIONS (7)
  - Haematochezia [Unknown]
  - Haemorrhoids [Unknown]
  - Weight fluctuation [Unknown]
  - Body surface area decreased [Unknown]
  - Diarrhoea [Unknown]
  - Abdominal pain upper [Unknown]
  - Body surface area increased [Unknown]
